FAERS Safety Report 17927798 (Version 1)
Quarter: 2020Q2

REPORT INFORMATION
  Report Type: Spontaneous
  Country: PL (occurrence: PL)
  Receive Date: 20200623
  Receipt Date: 20200623
  Transmission Date: 20200714
  Serious: Yes (Death, Life-Threatening, Hospitalization, Other)
  Sender: FDA-Public Use
  Company Number: PL-ALKEM LABORATORIES LIMITED-PL-ALKEM-2020-02842

PATIENT
  Age: 65 Year
  Sex: Female

DRUGS (2)
  1. MYCOPHENOLATE MOFETIL. [Suspect]
     Active Substance: MYCOPHENOLATE MOFETIL
     Indication: IMMUNOSUPPRESSION
     Dosage: UNK
     Route: 065
  2. FLUCONAZOLE. [Suspect]
     Active Substance: FLUCONAZOLE
     Indication: PRODUCT USED FOR UNKNOWN INDICATION
     Dosage: UNK
     Route: 065

REACTIONS (11)
  - Coagulopathy [Fatal]
  - Fungaemia [Fatal]
  - Condition aggravated [Unknown]
  - Cachexia [Fatal]
  - Haemorrhage [Fatal]
  - Septic shock [Fatal]
  - Circulatory collapse [Fatal]
  - Multiple organ dysfunction syndrome [Fatal]
  - Drug ineffective [Unknown]
  - Disseminated cryptococcosis [Fatal]
  - Cryptococcosis [Fatal]

NARRATIVE: CASE EVENT DATE: 2015
